FAERS Safety Report 6332515-3 (Version None)
Quarter: 2009Q3

REPORT INFORMATION
  Report Type: 
  Country: None (occurrence: None)
  Receive Date: 20090828
  Receipt Date: 20090316
  Transmission Date: 20100115
  Serious: Yes (Other)
  Sender: FDA-Public Use
  Company Number: A0773603A

PATIENT
  Age: 20 Year
  Sex: Female

DRUGS (2)
  1. MALARONE [Suspect]
     Indication: MALARIA PROPHYLAXIS
     Route: 048
     Dates: start: 20090107
  2. NO CONCURRENT MEDICATION [Concomitant]

REACTIONS (2)
  - MALARIA [None]
  - PYREXIA [None]
